FAERS Safety Report 17946350 (Version 1)
Quarter: 2020Q2

REPORT INFORMATION
  Report Type: Spontaneous
  Country: FR (occurrence: FR)
  Receive Date: 20200625
  Receipt Date: 20200625
  Transmission Date: 20200714
  Serious: Yes (Other)
  Sender: FDA-Public Use
  Company Number: NVSC2020FR178489

PATIENT
  Age: 60 Year
  Sex: Female

DRUGS (3)
  1. ROXITHROMYCIN [Suspect]
     Active Substance: ROXITHROMYCIN
     Indication: PNEUMONIA LEGIONELLA
     Dosage: 150 MG, QD
     Route: 065
  2. OFLOXACIN. [Suspect]
     Active Substance: OFLOXACIN
     Dosage: 200 MG, QD
     Route: 065
  3. OFLOXACIN. [Suspect]
     Active Substance: OFLOXACIN
     Indication: PNEUMONIA LEGIONELLA
     Dosage: 200 MG, QD
     Route: 065

REACTIONS (2)
  - Lung abscess [Unknown]
  - Pneumonia legionella [Unknown]
